FAERS Safety Report 7709298-5 (Version None)
Quarter: 2011Q3

REPORT INFORMATION
  Report Type: 
  Country: None (occurrence: None)
  Receive Date: 20110825
  Receipt Date: 20110606
  Transmission Date: 20111222
  Serious: No
  Sender: FDA-Public Use
  Company Number: US-TYCO HEALTHCARE/MALLINCKRODT-T201101186

PATIENT
  Sex: Male

DRUGS (2)
  1. FENTANYL-100 [Suspect]
     Indication: PAIN
     Dosage: 100 UG/HR Q72 HRS
     Route: 062
     Dates: start: 20110401
  2. OXYCONTIN [Concomitant]
     Indication: PAIN
     Dosage: UNK
     Dates: end: 20110401

REACTIONS (1)
  - DRUG INEFFECTIVE [None]
